FAERS Safety Report 7144981-4 (Version None)
Quarter: 2010Q4

REPORT INFORMATION
  Report Type: 
  Country: None (occurrence: None)
  Receive Date: 20101208
  Receipt Date: 20101201
  Transmission Date: 20110411
  Serious: Yes (Death, Hospitalization)
  Sender: FDA-Public Use
  Company Number: US-BRISTOL-MYERS SQUIBB COMPANY-14440036

PATIENT
  Age: 55 Year
  Sex: Male
  Weight: 63 kg

DRUGS (8)
  1. CETUXIMAB [Suspect]
     Indication: NON-SMALL CELL LUNG CANCER
     Dosage: CHIMERIC ANTI-EGFR MAB. THERAPY START DATE 25AUG08.
     Route: 042
     Dates: start: 20080825, end: 20081103
  2. PACLITAXEL [Suspect]
     Indication: NON-SMALL CELL LUNG CANCER
     Dosage: THERAPY START DATE 25AUG08, 2ND COURSE ON 15SEP08
     Route: 042
     Dates: start: 20080825, end: 20080915
  3. CARBOPLATIN [Suspect]
     Indication: NON-SMALL CELL LUNG CANCER
     Dosage: THERAPY START DATE 25AUG08.2ND COURSE ON 15SEP08
     Route: 042
     Dates: start: 20080825, end: 20080915
  4. BEVACIZUMAB [Suspect]
     Indication: NON-SMALL CELL LUNG CANCER
     Dosage: THERAPY START DATE 08SEP08
     Route: 042
     Dates: start: 20080908, end: 20080922
  5. TYLOX [Concomitant]
     Dosage: 1 DOSAGEFORM = 5/325 MG
     Dates: start: 20080825
  6. MINOCYCLINE [Concomitant]
     Dates: start: 20080904
  7. NEXIUM [Concomitant]
     Indication: GASTROOESOPHAGEAL REFLUX DISEASE
     Dosage: ALSO TAKEN 40MG QD IV FROM 08NOV08-17NOV08 9DAYS
     Route: 048
     Dates: start: 20081108, end: 20081117
  8. COMPAZINE [Concomitant]
     Indication: NAUSEA
     Dosage: ALSO TAKEN 5 MG 1 IN 8 HR, IV FROM 08NOV08-08NOV08
     Route: 048

REACTIONS (2)
  - DISEASE PROGRESSION [None]
  - METASTASES TO MENINGES [None]
